FAERS Safety Report 5983766-9 (Version None)
Quarter: 2008Q4

REPORT INFORMATION
  Report Type: 
  Country: None (occurrence: None)
  Receive Date: 20081208
  Receipt Date: 20080914
  Transmission Date: 20090506
  Serious: No
  Sender: FDA-Public Use
  Company Number: US-AMGEN-KDL307689

PATIENT
  Sex: Male

DRUGS (2)
  1. ENBREL [Suspect]
     Indication: RHEUMATOID ARTHRITIS
     Route: 058
     Dates: start: 20061216
  2. METHOTREXATE [Concomitant]
     Route: 048

REACTIONS (6)
  - HEARING IMPAIRED [None]
  - INCREASED UPPER AIRWAY SECRETION [None]
  - MUSCLE SPASMS [None]
  - MUSCLE TWITCHING [None]
  - NERVE COMPRESSION [None]
  - WHITE BLOOD CELL COUNT DECREASED [None]
